FAERS Safety Report 9294972 (Version 1)
Quarter: 2013Q2

REPORT INFORMATION
  Report Type: Spontaneous
  Country: DK (occurrence: DK)
  Receive Date: 20130517
  Receipt Date: 20130517
  Transmission Date: 20140414
  Serious: Yes (Life-Threatening)
  Sender: FDA-Public Use
  Company Number: DK-JNJFOC-20130507284

PATIENT
  Age: 11 Year
  Sex: Male
  Weight: 40 kg

DRUGS (2)
  1. REMICADE [Suspect]
     Indication: JUVENILE IDIOPATHIC ARTHRITIS
     Dosage: DOSE: 200 (UNITS UNSPECIFIED)
     Route: 042
     Dates: start: 20121120, end: 20121120
  2. REMICADE [Suspect]
     Indication: JUVENILE IDIOPATHIC ARTHRITIS
     Dosage: DOSE: 200 (UNITS UNSPECIFIED)
     Route: 042
     Dates: start: 20121022

REACTIONS (10)
  - Anaphylactic reaction [Recovered/Resolved]
  - Urticaria [Recovered/Resolved]
  - Dyspnoea [Recovered/Resolved]
  - Swollen tongue [Recovered/Resolved]
  - Blood pressure decreased [Recovered/Resolved]
  - Oxygen saturation decreased [Recovered/Resolved]
  - Malaise [Recovered/Resolved]
  - Vomiting [Recovered/Resolved]
  - Infusion related reaction [Recovered/Resolved]
  - Off label use [Recovered/Resolved]
